FAERS Safety Report 17578471 (Version 1)
Quarter: 2020Q1

REPORT INFORMATION
  Report Type: Report from Study
  Country: None (occurrence: US)
  Receive Date: 20200324
  Receipt Date: 20200324
  Transmission Date: 20200409
  Serious: Yes (Other)
  Sender: FDA-Public Use
  Company Number: US-ABBVIE-20K-163-3328797-00

PATIENT
  Age: 63 Year
  Sex: Male

DRUGS (2)
  1. HUMIRA [Suspect]
     Active Substance: ADALIMUMAB
     Route: 058
     Dates: start: 2018
  2. HUMIRA [Suspect]
     Active Substance: ADALIMUMAB
     Indication: PSORIATIC ARTHROPATHY
     Route: 058
     Dates: end: 2018

REACTIONS (7)
  - Rhinorrhoea [Unknown]
  - Chest discomfort [Unknown]
  - Skin abrasion [Unknown]
  - Accident [Unknown]
  - Cough [Unknown]
  - Head injury [Unknown]
  - Headache [Unknown]

NARRATIVE: CASE EVENT DATE: 201805
